FAERS Safety Report 11981515 (Version 1)
Quarter: 2016Q1

REPORT INFORMATION
  Report Type: Report from Study
  Country: ZA (occurrence: ZA)
  Receive Date: 20160130
  Receipt Date: 20160130
  Transmission Date: 20160526
  Serious: Yes (Life-Threatening, Hospitalization, Other)
  Sender: FDA-Public Use
  Company Number: ZA-ABBVIE-15K-143-1518556-00

PATIENT
  Sex: Female
  Weight: 95 kg

DRUGS (9)
  1. MODURETIC 5-50 [Concomitant]
     Active Substance: AMILORIDE HYDROCHLORIDE\HYDROCHLOROTHIAZIDE
     Indication: HYPERTENSION
     Dosage: 25MG DAILY
     Route: 048
  2. PURICOS [Concomitant]
     Active Substance: ALLOPURINOL
     Indication: GOUT
     Dosage: 400G DAILY
  3. CELEBREX [Concomitant]
     Active Substance: CELECOXIB
     Indication: RHEUMATOID ARTHRITIS
     Dosage: 100MG BI DAILY
  4. SLOW K [Concomitant]
     Active Substance: POTASSIUM CHLORIDE
     Indication: HYPERTENSION
     Route: 048
  5. HUMIRA [Suspect]
     Active Substance: ADALIMUMAB
     Indication: RHEUMATOID ARTHRITIS
     Route: 058
     Dates: start: 20130327, end: 20151002
  6. LILY FIVOXETINE [Concomitant]
     Indication: DEPRESSION
     Dosage: 20MG DAILY
  7. METHOTREXATE [Concomitant]
     Active Substance: METHOTREXATE
     Indication: RHEUMATOID ARTHRITIS
     Dosage: 25 MG PER WEEK
     Route: 048
     Dates: start: 2009
  8. ELTROXIN [Concomitant]
     Active Substance: LEVOTHYROXINE
     Indication: HYPOTHYROIDISM
     Dosage: 150MG DAILY
     Route: 048
  9. FOLATE [Concomitant]
     Active Substance: FOLATE SODIUM
     Indication: RHEUMATOID ARTHRITIS
     Dosage: 10MG DAILY
     Route: 048

REACTIONS (2)
  - Invasive lobular breast carcinoma [Unknown]
  - Fibroadenoma of breast [Unknown]
